FAERS Safety Report 7402797-5 (Version None)
Quarter: 2011Q2

REPORT INFORMATION
  Report Type: 
  Country: None (occurrence: None)
  Receive Date: 20110408
  Receipt Date: 20110330
  Transmission Date: 20111010
  Serious: Yes (Other)
  Sender: FDA-Public Use
  Company Number: GB-ROCHE-769193

PATIENT
  Age: 17 Year
  Sex: Female
  Weight: 73.3 kg

DRUGS (2)
  1. YASMIN [Suspect]
     Route: 048
     Dates: start: 20100929
  2. ISOTRETINOIN [Suspect]
     Dosage: ACTION TAKEN WITH DRUG: DRUG WITHDRAWN
     Route: 048
     Dates: start: 20101108, end: 20101207

REACTIONS (1)
  - PREGNANCY ON ORAL CONTRACEPTIVE [None]
